FAERS Safety Report 5711246-4 (Version None)
Quarter: 2008Q2

REPORT INFORMATION
  Report Type: 
  Country: None (occurrence: None)
  Receive Date: 20080421
  Receipt Date: 20080410
  Transmission Date: 20081010
  Serious: Yes (Other)
  Sender: FDA-Public Use
  Company Number: US-ROCHE-557816

PATIENT
  Age: 35 Year
  Sex: Male

DRUGS (1)
  1. TAMIFLU [Suspect]
     Route: 065
     Dates: start: 20080405, end: 20080407

REACTIONS (3)
  - DELIRIUM [None]
  - DIZZINESS [None]
  - MEMORY IMPAIRMENT [None]
